FAERS Safety Report 7470259-5 (Version None)
Quarter: 2011Q2

REPORT INFORMATION
  Report Type: 
  Country: None (occurrence: None)
  Receive Date: 20110510
  Receipt Date: 20110429
  Transmission Date: 20111010
  Serious: Yes (Other)
  Sender: FDA-Public Use
  Company Number: US-KINGPHARMUSA00001-K201100180

PATIENT
  Age: 60 Year
  Sex: Female

DRUGS (3)
  1. WARFARIN [Concomitant]
  2. LEVOXYL [Suspect]
     Dosage: UNK
     Route: 048
     Dates: start: 20101112
  3. LEVOXYL [Suspect]
     Dosage: 88 MCG, UNK
     Route: 048

REACTIONS (17)
  - MYALGIA [None]
  - LOSS OF CONSCIOUSNESS [None]
  - BLOOD THYROID STIMULATING HORMONE ABNORMAL [None]
  - PANIC ATTACK [None]
  - DEPRESSION [None]
  - VOMITING [None]
  - FEAR [None]
  - CONFUSIONAL STATE [None]
  - EYE PAIN [None]
  - SUICIDAL IDEATION [None]
  - HAEMATEMESIS [None]
  - PARAESTHESIA [None]
  - PHOTOPHOBIA [None]
  - BLOOD PRESSURE ABNORMAL [None]
  - NAUSEA [None]
  - CRYING [None]
  - FATIGUE [None]
